FAERS Safety Report 6344422-0 (Version None)
Quarter: 2009Q3

REPORT INFORMATION
  Report Type: 
  Country: None (occurrence: None)
  Receive Date: 20090908
  Receipt Date: 20090831
  Transmission Date: 20100115
  Serious: Yes (Other)
  Sender: FDA-Public Use
  Company Number: PHHY2009IT37044

PATIENT
  Sex: Male

DRUGS (1)
  1. TOLEP [Suspect]
     Dosage: 1200 MG/DAY
     Route: 048
     Dates: start: 20090510

REACTIONS (1)
  - EPILEPSY [None]
